FAERS Safety Report 6517942-3 (Version None)
Quarter: 2009Q4

REPORT INFORMATION
  Report Type: 
  Country: None (occurrence: None)
  Receive Date: 20091224
  Receipt Date: 20091211
  Transmission Date: 20100525
  Serious: Yes (Other)
  Sender: FDA-Public Use
  Company Number: US-PFIZER INC-2009309035

PATIENT
  Age: 75 Year
  Sex: Male

DRUGS (1)
  1. LIPITOR [Suspect]
     Dosage: 80 MG, UNK

REACTIONS (8)
  - BLOOD CREATINE PHOSPHOKINASE INCREASED [None]
  - CHROMATURIA [None]
  - HAEMATURIA [None]
  - HEPATIC ENZYME INCREASED [None]
  - MUSCULAR WEAKNESS [None]
  - MYALGIA [None]
  - PAIN IN EXTREMITY [None]
  - RHABDOMYOLYSIS [None]
